FAERS Safety Report 15068007 (Version 1)
Quarter: 2018Q2

REPORT INFORMATION
  Report Type: Spontaneous
  Country: DE (occurrence: DE)
  Receive Date: 20180626
  Receipt Date: 20180626
  Transmission Date: 20180711
  Serious: Yes (Other)
  Sender: FDA-Public Use
  Company Number: PHHY2018DE026609

PATIENT
  Sex: Female

DRUGS (4)
  1. ENTRESTO [Suspect]
     Active Substance: SACUBITRIL\VALSARTAN
     Dosage: UNK, (97/103)
     Route: 065
  2. TORASEMID-1A PHARMA [Suspect]
     Active Substance: TORSEMIDE
     Dosage: 10 MG, UNK
     Route: 065
  3. ENTRESTO [Suspect]
     Active Substance: SACUBITRIL\VALSARTAN
     Indication: PRODUCT USED FOR UNKNOWN INDICATION
     Dosage: UNK
     Route: 065
     Dates: start: 201711
  4. TORASEMID-1A PHARMA [Suspect]
     Active Substance: TORSEMIDE
     Indication: PRODUCT USED FOR UNKNOWN INDICATION
     Dosage: UNK
     Route: 065
     Dates: start: 201705

REACTIONS (11)
  - Visual impairment [Unknown]
  - Oedema peripheral [Unknown]
  - Diarrhoea [Unknown]
  - Drug intolerance [Unknown]
  - Liver disorder [Unknown]
  - Fatigue [Unknown]
  - Cardiovascular insufficiency [Unknown]
  - Decreased appetite [Unknown]
  - Haematochezia [Unknown]
  - Gastrointestinal disorder [Unknown]
  - Dizziness [Unknown]
